FAERS Safety Report 6082261-9 (Version None)
Quarter: 2009Q1

REPORT INFORMATION
  Report Type: 
  Country: None (occurrence: None)
  Receive Date: 20090126
  Receipt Date: 20080814
  Transmission Date: 20090719
  Serious: Yes (Hospitalization)
  Sender: FDA-Public Use
  Company Number: 278720

PATIENT
  Age: 30 Year
  Sex: Female

DRUGS (5)
  1. LEVEMIR [Suspect]
     Indication: TYPE 1 DIABETES MELLITUS
     Dosage: 45 LU, QD, SUBCUTANEOUS
     Route: 058
     Dates: start: 20080101, end: 20080811
  2. SEROQUEL [Concomitant]
  3. LEXAPRO [Concomitant]
  4. DEMEROL [Concomitant]
  5. ANTIBIOTICS [Concomitant]

REACTIONS (1)
  - BLOOD GLUCOSE DECREASED [None]
